FAERS Safety Report 17013975 (Version 1)
Quarter: 2019Q4

REPORT INFORMATION
  Report Type: Spontaneous
  Country: US (occurrence: US)
  Receive Date: 20191111
  Receipt Date: 20191111
  Transmission Date: 20200122
  Serious: No
  Sender: FDA-Public Use
  Company Number: US-JNJFOC-20191048830

PATIENT

DRUGS (2)
  1. ROGAINE [Suspect]
     Active Substance: MINOXIDIL
     Indication: PLATELET RICH PLASMA THERAPY
     Route: 065
  2. FINESTRIDE [Suspect]
     Active Substance: FINASTERIDE
     Indication: PLATELET RICH PLASMA THERAPY
     Route: 065

REACTIONS (6)
  - Incorrect route of product administration [Unknown]
  - Wrong technique in product usage process [Unknown]
  - Hair texture abnormal [Unknown]
  - Application site irritation [Unknown]
  - Product use in unapproved indication [Unknown]
  - Off label use [Unknown]
